FAERS Safety Report 18756401 (Version 1)
Quarter: 2021Q1

REPORT INFORMATION
  Report Type: Spontaneous
  Country: JP (occurrence: JP)
  Receive Date: 20210119
  Receipt Date: 20210119
  Transmission Date: 20210419
  Serious: Yes (Death, Other)
  Sender: FDA-Public Use
  Company Number: JP-PFIZER INC-2021041919

PATIENT
  Sex: Female

DRUGS (2)
  1. IBRANCE [Suspect]
     Active Substance: PALBOCICLIB
     Dosage: 125 MG, DAILY
     Route: 048
     Dates: start: 202007
  2. FASLODEX [Concomitant]
     Active Substance: FULVESTRANT

REACTIONS (3)
  - Death [Fatal]
  - Malaise [Unknown]
  - Gastrointestinal perforation [Unknown]

NARRATIVE: CASE EVENT DATE: 20210105
